FAERS Safety Report 5833881-5 (Version None)
Quarter: 2008Q3

REPORT INFORMATION
  Report Type: 
  Country: None (occurrence: None)
  Receive Date: 20080805
  Receipt Date: 20080728
  Transmission Date: 20090109
  Serious: Yes (Hospitalization, Congenital Anomaly)
  Sender: FDA-Public Use
  Company Number: A0687231A

PATIENT
  Sex: Female
  Weight: 3.2 kg

DRUGS (8)
  1. PAXIL [Suspect]
     Indication: DEPRESSION
     Dosage: 20MG PER DAY
     Dates: start: 20000901
  2. ERYTHROMYCIN [Concomitant]
  3. VICODIN [Concomitant]
  4. VITAMIN TAB [Concomitant]
  5. INSULIN [Concomitant]
  6. CHLOR-TRIMETON [Concomitant]
  7. TYLENOL [Concomitant]
  8. RHINOCORT [Concomitant]

REACTIONS (11)
  - CLEFT PALATE [None]
  - COMMUNICATION DISORDER [None]
  - DEVELOPMENTAL DELAY [None]
  - DIGEORGE'S SYNDROME [None]
  - DRUG EXPOSURE DURING PREGNANCY [None]
  - ENDOCARDITIS [None]
  - HEART DISEASE CONGENITAL [None]
  - PATENT DUCTUS ARTERIOSUS [None]
  - TRACHEAL STENOSIS [None]
  - TRACHEOMALACIA [None]
  - VENTRICULAR SEPTAL DEFECT [None]
